FAERS Safety Report 10070586 (Version 1)
Quarter: 2014Q2

REPORT INFORMATION
  Report Type: Spontaneous
  Country: US (occurrence: US)
  Receive Date: 20140410
  Receipt Date: 20140410
  Transmission Date: 20141212
  Serious: Yes (Other)
  Sender: FDA-Public Use
  Company Number: US-BRISTOL-MYERS SQUIBB COMPANY-20597076

PATIENT
  Age: 60 Year
  Sex: Male
  Weight: 9.2 kg

DRUGS (4)
  1. BYDUREON [Suspect]
     Indication: TYPE 2 DIABETES MELLITUS
     Route: 058
  2. PRADAXA [Concomitant]
     Indication: COAGULOPATHY
  3. METFORMIN [Concomitant]
  4. GLYBURIDE [Concomitant]
     Dosage: 10MG TABS IN THE MORNING AND 2 AT NIGHT

REACTIONS (3)
  - Myocardial infarction [Unknown]
  - Injection site haemorrhage [Unknown]
  - Injection site extravasation [Unknown]
